FAERS Safety Report 10251554 (Version 1)
Quarter: 2014Q2

REPORT INFORMATION
  Report Type: Spontaneous
  Country: ZA (occurrence: ZA)
  Receive Date: 20140623
  Receipt Date: 20140623
  Transmission Date: 20141212
  Serious: Yes (Hospitalization, Other)
  Sender: FDA-Public Use
  Company Number: ZA-JNJFOC-20140611875

PATIENT
  Age: 79 Year
  Sex: Male

DRUGS (34)
  1. XARELTO [Suspect]
     Indication: KNEE ARTHROPLASTY
     Route: 048
     Dates: start: 20140521, end: 20140522
  2. XARELTO [Suspect]
     Indication: KNEE ARTHROPLASTY
     Route: 048
     Dates: start: 20140529
  3. XARELTO [Suspect]
     Indication: THROMBOSIS PROPHYLAXIS
     Route: 048
     Dates: start: 20140521, end: 20140522
  4. XARELTO [Suspect]
     Indication: THROMBOSIS PROPHYLAXIS
     Route: 048
     Dates: start: 20140529
  5. CALAMINE [Concomitant]
     Route: 065
     Dates: start: 20140528, end: 20140529
  6. IMOVANE [Concomitant]
     Route: 065
     Dates: start: 20140520, end: 20140523
  7. NEXIAM [Concomitant]
     Route: 065
     Dates: start: 20140521, end: 20140529
  8. PREXUM [Concomitant]
     Route: 065
     Dates: start: 20140523, end: 20140529
  9. ALPRAZOLAM [Concomitant]
     Route: 065
     Dates: start: 20140522, end: 20140528
  10. BRUFEN [Concomitant]
     Route: 065
     Dates: start: 20140523, end: 20140528
  11. DILATREND [Concomitant]
     Route: 065
     Dates: start: 20140522, end: 20140529
  12. OXYNORM [Concomitant]
     Route: 065
     Dates: start: 20140522
  13. STEMETIL [Concomitant]
     Route: 065
     Dates: start: 20140527
  14. STEMETIL [Concomitant]
     Route: 065
     Dates: start: 20140522
  15. STEMETIL [Concomitant]
     Route: 065
     Dates: start: 20140528
  16. PANADO [Concomitant]
     Route: 065
     Dates: start: 20140522, end: 20140526
  17. MORPHINE [Concomitant]
     Route: 065
     Dates: start: 20140502
  18. IRON [Concomitant]
     Route: 065
     Dates: start: 20140522, end: 20140528
  19. MOVICOL [Concomitant]
     Route: 065
     Dates: start: 20140522, end: 20140524
  20. GEODON [Concomitant]
     Route: 065
     Dates: start: 20140522, end: 20140523
  21. MOLACORT [Concomitant]
     Route: 065
     Dates: start: 20140528, end: 20140529
  22. THIAMINE [Concomitant]
     Route: 065
     Dates: start: 20140523, end: 20140528
  23. CODEINE PHOSPHATE / PARACETAMOL [Concomitant]
     Route: 065
     Dates: start: 20140528, end: 20140529
  24. LACTOBACILLUS ACIDOPHILUS [Concomitant]
     Route: 065
     Dates: start: 20140526
  25. LACTOBACILLUS ACIDOPHILUS [Concomitant]
     Route: 065
     Dates: start: 20140529
  26. CANESTEN HC [Concomitant]
     Route: 061
     Dates: start: 20140526, end: 20140529
  27. CLEXANE [Concomitant]
     Route: 058
     Dates: start: 20140524, end: 20140527
  28. AUGMENTIN [Concomitant]
     Route: 042
  29. KEFZOL [Concomitant]
     Route: 065
     Dates: start: 20140521, end: 20140522
  30. LYRICA [Concomitant]
     Route: 065
     Dates: start: 20140520, end: 20140522
  31. PERFALGAN [Concomitant]
     Route: 065
     Dates: start: 20140521, end: 20140522
  32. KYTRIL [Concomitant]
     Route: 065
     Dates: start: 20140521, end: 20140522
  33. ENOXAPARIN [Concomitant]
     Route: 065
     Dates: start: 20140524, end: 20140527
  34. TRAMADOL [Concomitant]
     Route: 065
     Dates: start: 20140523, end: 20140528

REACTIONS (4)
  - Wound secretion [Unknown]
  - Pseudomonas infection [Unknown]
  - Wound haematoma [Unknown]
  - Joint swelling [Unknown]
